FAERS Safety Report 8820537 (Version 2)
Quarter: 2013Q1

REPORT INFORMATION
  Report Type: Spontaneous
  Country: BE (occurrence: BE)
  Receive Date: 20121002
  Receipt Date: 20130227
  Transmission Date: 20140127
  Serious: Yes (Death, Other)
  Sender: FDA-Public Use
  Company Number: BE-ASTRAZENECA-2012SE75316

PATIENT
  Age: 32374 Day
  Sex: Male

DRUGS (9)
  1. SEROQUEL XR [Suspect]
     Indication: ABNORMAL BEHAVIOUR
     Route: 048
     Dates: start: 20120919, end: 20120920
  2. SEROQUEL XR [Suspect]
     Indication: SENILE DEMENTIA
     Route: 048
     Dates: start: 20120919, end: 20120920
  3. ZANTAC [Concomitant]
     Dates: start: 20060425
  4. LYSOMUCIL [Concomitant]
     Dates: start: 20120705
  5. ALDACTON [Concomitant]
     Dates: start: 20120705
  6. BURINEX [Concomitant]
     Dates: start: 20120510
  7. NESTROLAN [Concomitant]
     Dates: start: 20120705
  8. FOSAMAX [Concomitant]
     Dates: start: 20120705
  9. LEXANA [Concomitant]
     Indication: ATRIAL FIBRILLATION
     Dates: start: 2012

REACTIONS (3)
  - Atrial fibrillation [Fatal]
  - Bronchitis [Fatal]
  - Off label use [Unknown]
